FAERS Safety Report 4344319-1 (Version None)
Quarter: 2004Q2

REPORT INFORMATION
  Report Type: 
  Country: None (occurrence: None)
  Receive Date: 20040422
  Receipt Date: 20040412
  Transmission Date: 20050107
  Serious: Yes (Other)
  Sender: FDA-Public Use
  Company Number: US-BRISTOL-MYERS SQUIBB COMPANY-12562245

PATIENT
  Age: 69 Year
  Sex: Male

DRUGS (2)
  1. HYDROXYUREA [Suspect]
     Indication: ACUTE MONOCYTIC LEUKAEMIA
  2. ALLOPURINOL [Suspect]
     Indication: ACUTE MONOCYTIC LEUKAEMIA

REACTIONS (4)
  - DISSEMINATED INTRAVASCULAR COAGULATION [None]
  - FALSE POSITIVE LABORATORY RESULT [None]
  - GENERAL PHYSICAL HEALTH DETERIORATION [None]
  - TUMOUR LYSIS SYNDROME [None]
